FAERS Safety Report 5483835-6 (Version None)
Quarter: 2007Q4

REPORT INFORMATION
  Report Type: 
  Country: None (occurrence: None)
  Receive Date: 20071012
  Receipt Date: 20071003
  Transmission Date: 20080405
  Serious: Yes (Other)
  Sender: FDA-Public Use
  Company Number: US-JNJFOC-20070205134

PATIENT
  Sex: Female
  Weight: 47.17 kg

DRUGS (8)
  1. TYLENOL SINUS CONGESTION + PAIN SEVERE COOL BURST [Suspect]
     Indication: SINUS CONGESTION
     Route: 048
  2. TYLENOL SINUS CONGESTION + PAIN SEVERE COOL BURST [Suspect]
     Indication: SINUS HEADACHE
     Route: 048
  3. FOSAMAX [Concomitant]
     Indication: OSTEOPOROSIS
  4. LEVOTHYROXINE SODIUM [Concomitant]
     Indication: THYROID DISORDER
  5. COSOPT [Concomitant]
     Indication: GLAUCOMA
     Dosage: BOTH EYES
     Route: 031
  6. ALPHAGAN [Concomitant]
     Indication: GLAUCOMA
     Dosage: LEFT EYE
     Route: 031
  7. LUMIGAN [Concomitant]
     Indication: GLAUCOMA
     Dosage: BOTH EYES
     Route: 031
  8. LIPITOR [Concomitant]

REACTIONS (1)
  - INTRAOCULAR PRESSURE INCREASED [None]
